FAERS Safety Report 5402794-5 (Version None)
Quarter: 2007Q3

REPORT INFORMATION
  Report Type: 
  Country: None (occurrence: None)
  Receive Date: 20070730
  Receipt Date: 20070723
  Transmission Date: 20080115
  Serious: Yes (Hospitalization)
  Sender: FDA-Public Use
  Company Number: 2006SP008992

PATIENT
  Age: 63 Year
  Sex: Male
  Weight: 26.3086 kg

DRUGS (7)
  1. TEMODAL [Suspect]
     Indication: ANAPLASTIC ASTROCYTOMA
     Dosage: 120 MG; QD; PO
     Route: 048
     Dates: start: 20061101, end: 20061212
  2. ZONISAMIDE [Suspect]
     Indication: ANAPLASTIC ASTROCYTOMA
     Dosage: 2 DF; BID; PO
     Route: 048
     Dates: start: 20061020, end: 20061219
  3. DECADRON [Suspect]
     Indication: ANAPLASTIC ASTROCYTOMA
     Dosage: 4 DF; PO
     Route: 048
     Dates: start: 20061020, end: 20070112
  4. RADIOTHERAPY [Concomitant]
  5. SELBEX [Concomitant]
  6. NAUZELIN [Concomitant]
  7. NEO-MINOPHAGEN C [Concomitant]

REACTIONS (5)
  - CONDITION AGGRAVATED [None]
  - HEPATITIS [None]
  - HEPATITIS B [None]
  - RASH [None]
  - STEROID WITHDRAWAL SYNDROME [None]
